FAERS Safety Report 8092022-7 (Version None)
Quarter: 2012Q1

REPORT INFORMATION
  Report Type: 
  Country: None (occurrence: None)
  Receive Date: 20120129
  Receipt Date: 20111101
  Transmission Date: 20120608
  Serious: Yes (Other)
  Sender: FDA-Public Use
  Company Number: US-ABBOTT-11P-163-0869257-00

PATIENT
  Age: 32 Year
  Sex: Female

DRUGS (3)
  1. IMITREX [Suspect]
     Indication: MIGRAINE
  2. ZOLOFT [Concomitant]
     Indication: ANXIETY
  3. HUMIRA [Suspect]
     Indication: PSORIASIS
     Route: 058
     Dates: start: 20110701

REACTIONS (9)
  - ANAPHYLACTIC REACTION [None]
  - PARANASAL SINUS HYPERSECRETION [None]
  - COUGH [None]
  - PURULENT DISCHARGE [None]
  - MIGRAINE [None]
  - ORAL MUCOSAL DISCOLOURATION [None]
  - RHINORRHOEA [None]
  - SINUSITIS [None]
  - SINUS HEADACHE [None]
